FAERS Safety Report 5703671-2 (Version None)
Quarter: 2008Q2

REPORT INFORMATION
  Report Type: 
  Country: None (occurrence: None)
  Receive Date: 20080413
  Receipt Date: 20080404
  Transmission Date: 20081010
  Serious: Yes (Hospitalization, Other)
  Sender: FDA-Public Use
  Company Number: PHHY2008AU04759

PATIENT
  Age: 40 Year
  Sex: Male

DRUGS (2)
  1. NEORAL [Suspect]
     Indication: LUNG TRANSPLANT
     Dates: start: 20020312
  2. ANTIBIOTICS [Concomitant]

REACTIONS (8)
  - ANOREXIA [None]
  - CACHEXIA [None]
  - CHRONIC SINUSITIS [None]
  - NAUSEA [None]
  - OBLITERATIVE BRONCHIOLITIS [None]
  - PSEUDOMONAS INFECTION [None]
  - SURGERY [None]
  - WEIGHT DECREASED [None]
